FAERS Safety Report 15759654 (Version 9)
Quarter: 2019Q2

REPORT INFORMATION
  Report Type: Report from Study
  Country: DE (occurrence: DE)
  Receive Date: 20181226
  Receipt Date: 20190521
  Transmission Date: 20190711
  Serious: Yes (Hospitalization)
  Sender: FDA-Public Use
  Company Number: DE-BIOGEN-2018BI00672919

PATIENT
  Age: 44 Year
  Sex: Male
  Weight: 83 kg

DRUGS (7)
  1. DIAZEPAM. [Concomitant]
     Active Substance: DIAZEPAM
     Indication: ANXIETY DISORDER
     Route: 065
  2. NEUREXAN [Concomitant]
     Active Substance: HOMEOPATHICS
     Indication: ANXIETY DISORDER
     Route: 065
  3. MIANSERIN [Concomitant]
     Active Substance: MIANSERIN
     Indication: ANXIETY DISORDER
     Route: 065
  4. TECFIDERA [Suspect]
     Active Substance: DIMETHYL FUMARATE
     Dosage: MAINTENANCE DOSE
     Route: 050
     Dates: start: 20180906
  5. TECFIDERA [Suspect]
     Active Substance: DIMETHYL FUMARATE
     Dosage: MAINTENANCE DOSE
     Route: 050
     Dates: start: 20180906
  6. TECFIDERA [Suspect]
     Active Substance: DIMETHYL FUMARATE
     Indication: MULTIPLE SCLEROSIS
     Dosage: MAINTENANCE DOSE
     Route: 050
     Dates: start: 20180906
  7. ZOPICLON [Concomitant]
     Active Substance: ZOPICLONE
     Indication: INITIAL INSOMNIA
     Route: 065

REACTIONS (5)
  - Pain [Not Recovered/Not Resolved]
  - Back pain [Recovered/Resolved]
  - Intervertebral disc protrusion [Not Recovered/Not Resolved]
  - Muscle spasticity [Not Recovered/Not Resolved]
  - Gastroenteritis viral [Recovered/Resolved]

NARRATIVE: CASE EVENT DATE: 201811
